FAERS Safety Report 25101976 (Version 2)
Quarter: 2025Q3

REPORT INFORMATION
  Report Type: Spontaneous
  Country: AU (occurrence: AU)
  Receive Date: 20250320
  Receipt Date: 20250711
  Transmission Date: 20251020
  Serious: Yes (Other)
  Sender: Alora Pharma
  Company Number: AU-OSMOTICA PHARMACEUTICALS-2025ALO00107

PATIENT
  Age: 1 Month
  Sex: Female

DRUGS (2)
  1. VENLAFAXINE [Suspect]
     Active Substance: VENLAFAXINE HYDROCHLORIDE
     Route: 064
  2. VENLAFAXINE [Suspect]
     Active Substance: VENLAFAXINE HYDROCHLORIDE

REACTIONS (8)
  - Failure to thrive [Recovering/Resolving]
  - Sedation [Recovering/Resolving]
  - Drug withdrawal syndrome neonatal [Recovering/Resolving]
  - Toxicity to various agents [Recovering/Resolving]
  - Seizure [Recovered/Resolved]
  - Foetal exposure during pregnancy [Recovered/Resolved]
  - Maternal exposure during breast feeding [Recovered/Resolved]
  - Neonatal behavioural syndrome [Recovering/Resolving]
